FAERS Safety Report 23164499 (Version 1)
Quarter: 2023Q4

REPORT INFORMATION
  Report Type: Spontaneous
  Country: US (occurrence: US)
  Receive Date: 20231109
  Receipt Date: 20231109
  Transmission Date: 20240110
  Serious: No
  Sender: FDA-Public Use
  Company Number: US-ABBVIE-5485909

PATIENT

DRUGS (2)
  1. RESTASIS [Suspect]
     Active Substance: CYCLOSPORINE
     Indication: Product used for unknown indication
     Route: 047
  2. RESTASIS [Suspect]
     Active Substance: CYCLOSPORINE
     Dosage: TIME INTERVAL: 0.33333333 DAYS: PATIENT INCREASED THE DOSAGE TO THREE TIMES TWO DROPS A DAY
     Route: 047

REACTIONS (2)
  - Intentional product misuse [Unknown]
  - Dry eye [Unknown]
